FAERS Safety Report 9751065 (Version 2)
Quarter: 2015Q3

REPORT INFORMATION
  Report Type: Spontaneous
  Country: GB (occurrence: GB)
  Receive Date: 20131212
  Receipt Date: 20150730
  Transmission Date: 20151125
  Serious: Yes (Other)
  Sender: FDA-Public Use
  Company Number: GB-GILEAD-GB-CVT-090766

PATIENT
  Sex: Male

DRUGS (7)
  1. CANDESARTAN [Concomitant]
     Active Substance: CANDESARTAN
     Indication: HYPERTENSION
  2. GLYCERYL TRINITRATE [Concomitant]
     Active Substance: NITROGLYCERIN
     Indication: ANGINA PECTORIS
  3. NICORANDIL [Concomitant]
     Active Substance: NICORANDIL
     Indication: ANGINA PECTORIS
  4. CARVEDILOL. [Concomitant]
     Active Substance: CARVEDILOL
     Indication: ANGINA PECTORIS
  5. RANEXA [Suspect]
     Active Substance: RANOLAZINE
     Indication: ANGINA PECTORIS
     Route: 048
     Dates: start: 200907
  6. ASPIRIN                            /00002701/ [Concomitant]
     Active Substance: ASPIRIN
     Indication: ANGINA PECTORIS
  7. SIMVASTATIN. [Concomitant]
     Active Substance: SIMVASTATIN
     Indication: BLOOD CHOLESTEROL INCREASED

REACTIONS (1)
  - Dizziness [Recovered/Resolved]

NARRATIVE: CASE EVENT DATE: 2009
